FAERS Safety Report 23138351 (Version 1)
Quarter: 2023Q4

REPORT INFORMATION
  Report Type: Spontaneous
  Country: CN (occurrence: CN)
  Receive Date: 20231102
  Receipt Date: 20231102
  Transmission Date: 20240110
  Serious: Yes (Hospitalization, Other)
  Sender: FDA-Public Use
  Company Number: CN-ELI_LILLY_AND_COMPANY-CN202310011774

PATIENT
  Age: 28 Year
  Sex: Female
  Weight: 68 kg

DRUGS (5)
  1. OLANZAPINE [Suspect]
     Active Substance: OLANZAPINE
     Indication: Emotional disorder
     Dosage: DAILY DOSE: 30 MILLIGRAM
     Route: 048
     Dates: start: 20230425
  2. OLANZAPINE [Suspect]
     Active Substance: OLANZAPINE
     Indication: Emotional disorder
     Dosage: DAILY DOSE: 20 MILLIGRAM
     Route: 048
     Dates: start: 202305
  3. OLANZAPINE [Suspect]
     Active Substance: OLANZAPINE
     Indication: Emotional disorder
     Dosage: TREATMENT WAS GRADUALLY DECREASED IN DOSAGE
     Route: 048
     Dates: end: 20230712
  4. LURASIDONE HYDROCHLORIDE [Suspect]
     Active Substance: LURASIDONE HYDROCHLORIDE
     Indication: Emotional disorder
     Dosage: DAILY DOSE: 80 MILLIGRAM
     Route: 048
     Dates: start: 20230517
  5. LURASIDONE HYDROCHLORIDE [Suspect]
     Active Substance: LURASIDONE HYDROCHLORIDE
     Indication: Emotional disorder
     Dosage: GRADUALLY DECREASED IN DOSAGE
     Route: 048
     Dates: end: 20230710

REACTIONS (3)
  - Hyperprolactinaemia [Recovered/Resolved]
  - Amenorrhoea [Recovered/Resolved]
  - Extrapyramidal disorder [Recovered/Resolved]

NARRATIVE: CASE EVENT DATE: 20230501
